FAERS Safety Report 4748263-7 (Version None)
Quarter: 2005Q3

REPORT INFORMATION
  Report Type: 
  Country: None (occurrence: None)
  Receive Date: 20050815
  Receipt Date: 20050601
  Transmission Date: 20060218
  Serious: No
  Sender: FDA-Public Use
  Company Number: USA050599365

PATIENT
  Sex: Male

DRUGS (2)
  1. CIALIS [Suspect]
     Dosage: 20 MG
  2. HYPERTENSIVE MEDS [Concomitant]

REACTIONS (2)
  - CHEST PAIN [None]
  - HYPERHIDROSIS [None]
